FAERS Safety Report 5969138-1 (Version None)
Quarter: 2008Q4

REPORT INFORMATION
  Report Type: 
  Country: None (occurrence: None)
  Receive Date: 20081126
  Receipt Date: 20081120
  Transmission Date: 20090506
  Serious: Yes (Hospitalization)
  Sender: FDA-Public Use
  Company Number: AU-WATSON-2008-06917

PATIENT
  Age: 26 Year
  Sex: Male

DRUGS (1)
  1. SULFASALAZINE [Suspect]
     Indication: CROHN'S DISEASE
     Dosage: UNK

REACTIONS (3)
  - GAS GANGRENE [None]
  - MUSCLE NECROSIS [None]
  - NEUTROPENIA [None]
